FAERS Safety Report 4472918-5 (Version None)
Quarter: 2004Q4

REPORT INFORMATION
  Report Type: 
  Country: None (occurrence: None)
  Receive Date: 20041013
  Receipt Date: 20041006
  Transmission Date: 20050328
  Serious: Yes (Hospitalization)
  Sender: FDA-Public Use
  Company Number: BR-JNJFOC-20040908553

PATIENT
  Age: 10 Year
  Sex: Female

DRUGS (2)
  1. HALDOL [Suspect]
     Indication: DEPRESSIVE SYMPTOM
  2. FLUOXETINE [Suspect]
     Indication: DEPRESSIVE SYMPTOM

REACTIONS (5)
  - AGITATION [None]
  - EXTRAPYRAMIDAL DISORDER [None]
  - EYE MOVEMENT DISORDER [None]
  - MUSCLE CONTRACTIONS INVOLUNTARY [None]
  - SUICIDE ATTEMPT [None]
